FAERS Safety Report 6023280-8 (Version None)
Quarter: 2008Q4

REPORT INFORMATION
  Report Type: 
  Country: None (occurrence: None)
  Receive Date: 20081222
  Receipt Date: 20081022
  Transmission Date: 20090506
  Serious: No
  Sender: FDA-Public Use
  Company Number: SPV1-2008-02295

PATIENT
  Age: 15 Year
  Sex: Female

DRUGS (3)
  1. VYVANSE [Suspect]
     Dosage: 30 MG, 1X/DAY:QD, ORAL ; 60 MG, 1X/DAY:QD, ORAL
     Route: 048
     Dates: start: 20081001, end: 20081001
  2. VYVANSE [Suspect]
     Dosage: 30 MG, 1X/DAY:QD, ORAL ; 60 MG, 1X/DAY:QD, ORAL
     Route: 048
     Dates: start: 20081001
  3. CLONAZEPAM [Concomitant]

REACTIONS (4)
  - ANOREXIA [None]
  - FATIGUE [None]
  - INSOMNIA [None]
  - OFF LABEL USE [None]
